FAERS Safety Report 12689752 (Version 1)
Quarter: 2016Q3

REPORT INFORMATION
  Report Type: Spontaneous
  Country: US (occurrence: US)
  Receive Date: 20160826
  Receipt Date: 20160826
  Transmission Date: 20161109
  Serious: Yes (Other)
  Sender: FDA-Public Use
  Company Number: US-AMGEN-USASP2016109682

PATIENT
  Age: 73 Year
  Sex: Female

DRUGS (1)
  1. PROLIA [Suspect]
     Active Substance: DENOSUMAB
     Indication: OSTEOPOROSIS
     Dosage: UNK
     Route: 065
     Dates: end: 2014

REACTIONS (8)
  - Rash papular [Recovering/Resolving]
  - Surgery [Unknown]
  - Hyperaesthesia [Recovering/Resolving]
  - Blister [Recovered/Resolved]
  - Blister rupture [Recovering/Resolving]
  - Skin discolouration [Recovering/Resolving]
  - Pruritus [Recovered/Resolved]
  - Chest pain [Recovering/Resolving]

NARRATIVE: CASE EVENT DATE: 201501
